FAERS Safety Report 4959861-X (Version None)
Quarter: 2006Q1

REPORT INFORMATION
  Report Type: 
  Country: None (occurrence: None)
  Receive Date: 20060331
  Receipt Date: 20050928
  Transmission Date: 20060701
  Serious: Yes (Hospitalization)
  Sender: FDA-Public Use
  Company Number: US-MERCK-0509USA04534

PATIENT
  Age: 56 Year
  Sex: Female
  Weight: 75 kg

DRUGS (9)
  1. VIOXX [Suspect]
     Indication: ARTHRITIS
     Route: 048
  2. VIOXX [Suspect]
     Route: 048
  3. ACIPHEX [Concomitant]
     Route: 048
  4. ESTRADERM [Concomitant]
     Route: 061
  5. COLESTID [Concomitant]
     Route: 048
  6. PROZAC [Concomitant]
     Route: 048
  7. METAMUCIL [Concomitant]
     Route: 048
  8. IMODIUM [Concomitant]
     Route: 048
  9. DARVOCET [Concomitant]
     Route: 065

REACTIONS (4)
  - CHEST PAIN [None]
  - GASTROOESOPHAGEAL REFLUX DISEASE [None]
  - MYOCARDIAL INFARCTION [None]
  - SPINAL DISORDER [None]
